FAERS Safety Report 6756086-2 (Version None)
Quarter: 2010Q2

REPORT INFORMATION
  Report Type: 
  Country: None (occurrence: None)
  Receive Date: 20100604
  Receipt Date: 20100526
  Transmission Date: 20101027
  Serious: Yes (Other)
  Sender: FDA-Public Use
  Company Number: GB-PFIZER INC-2010054687

PATIENT
  Sex: Female

DRUGS (1)
  1. LIPITOR [Suspect]
     Dosage: UNK
     Dates: start: 20050101, end: 20070101

REACTIONS (11)
  - ANXIETY [None]
  - FATIGUE [None]
  - GASTRIC DISORDER [None]
  - HYPERSENSITIVITY [None]
  - MEMORY IMPAIRMENT [None]
  - MUSCLE INJURY [None]
  - MYALGIA [None]
  - PAIN IN EXTREMITY [None]
  - PRURITUS [None]
  - SWELLING FACE [None]
  - UNEVALUABLE EVENT [None]
